FAERS Safety Report 9241158 (Version 1)
Quarter: 2013Q1

REPORT INFORMATION
  Report Type: Spontaneous
  Country: US (occurrence: None)
  Receive Date: 20121120
  Receipt Date: 20121120
  Transmission Date: 20140127
  Serious: No
  Sender: FDA-Public Use
  Company Number: 1000038226

PATIENT
  Age: 44 Year
  Sex: Female

DRUGS (11)
  1. VIIBRYD [Suspect]
     Indication: DEPRESSION
     Dosage: 10MG (10MG, 1 IN 1 D), ORAL
     Route: 048
     Dates: start: 201208, end: 201208
  2. ALLERGY MEDICATIONS NOS (ALLERGY MEDICATIONS NOS) [Concomitant]
  3. ADVAIR (SERETIDE) [Concomitant]
  4. LORATIDINE [Concomitant]
  5. SYNTHROID (LEVOTHYROXINE SODIUM) [Concomitant]
  6. BUPROPION (BUPROPION) [Concomitant]
  7. CHOLESTEROL MEDICATION NOS (CHOLESTEROL MEDICATION NOS) [Concomitant]
  8. NEXIUM [Concomitant]
  9. LAMICTAL (LAMOTRIGINE) [Concomitant]
  10. MACROBID (NITROFURANTOIN) [Concomitant]
  11. ESTROGEN (ESTRADIOL) [Concomitant]

REACTIONS (8)
  - Vertigo [None]
  - Hallucination, visual [None]
  - Sleep terror [None]
  - Abdominal discomfort [None]
  - Vomiting [None]
  - Malaise [None]
  - Headache [None]
  - Hyperhidrosis [None]
